FAERS Safety Report 8975950 (Version 2)
Quarter: 2013Q3

REPORT INFORMATION
  Report Type: Spontaneous
  Country: US (occurrence: US)
  Receive Date: 20121219
  Receipt Date: 20130809
  Transmission Date: 20140515
  Serious: Yes (Other)
  Sender: FDA-Public Use
  Company Number: US-AMGEN-USASP2012068794

PATIENT
  Age: 72 Year
  Sex: Female

DRUGS (4)
  1. PROLIA [Suspect]
     Indication: OSTEOPOROSIS POSTMENOPAUSAL
     Dosage: UNK
     Route: 065
     Dates: start: 201109
  2. PRILOSEC                           /00661201/ [Concomitant]
     Dosage: UNK
  3. MULTIVITAMIN                       /07504101/ [Concomitant]
     Dosage: UNK
  4. CALCIUM [Concomitant]
     Dosage: UNK

REACTIONS (5)
  - Jaw disorder [Unknown]
  - Tooth fracture [Unknown]
  - Dental caries [Unknown]
  - Muscle spasms [Unknown]
  - Back pain [Unknown]
